FAERS Safety Report 8127200-1 (Version None)
Quarter: 2011Q4

REPORT INFORMATION
  Report Type: 
  Country: None (occurrence: None)
  Receive Date: 20111227
  Receipt Date: 20111028
  Transmission Date: 20120403
  Serious: No
  Sender: FDA-Public Use
  Company Number: PHHY2011US16945

PATIENT
  Age: 44 Year
  Sex: Male

DRUGS (10)
  1. GILENYA [Suspect]
     Indication: MULTIPLE SCLEROSIS
     Dosage: 0.5 MG, QD, ORAL
     Route: 048
     Dates: start: 20110215
  2. CALCIUM (CALCIUM) TABLET [Concomitant]
  3. MAGNESIUM (MAGNESIUM) CAPSULE [Concomitant]
  4. SERTRALINE (SERTRALINE) TABLET 09/15/2011 TO ONGOING [Concomitant]
  5. VITAMIN D (ERGOCALCIFEROL) CAPSULE [Concomitant]
  6. B COMPLEX (NICOTINAMIDE, PYRIDOXINE HYDROCHLORIDE, RIBOFLAVIN, THIAMIN [Concomitant]
  7. VITAMIN C (ASCORBIC ACID) TABLET, 500 MG [Concomitant]
  8. MAGNESIUM (MAGNESIUM) CAPSULE [Concomitant]
  9. MULTIVITAMINS (ASCORBIC ACID, ERGOCALCIFEROL, FOLIC ACID, NICOTINAMIDE [Concomitant]
  10. HAWTHORN (CRATAEGUS LAEVIGATA, CRATAEGUS OXYACANTHA) CAPSULE [Concomitant]

REACTIONS (4)
  - FATIGUE [None]
  - HEADACHE [None]
  - DIARRHOEA [None]
  - FLATULENCE [None]
